FAERS Safety Report 7469554-5 (Version None)
Quarter: 2011Q2

REPORT INFORMATION
  Report Type: 
  Country: None (occurrence: None)
  Receive Date: 20110510
  Receipt Date: 20110427
  Transmission Date: 20111010
  Serious: Yes (Disabling, Other)
  Sender: FDA-Public Use
  Company Number: PHEH2005US01858

PATIENT
  Sex: Female
  Weight: 63.492 kg

DRUGS (73)
  1. ELAVIL [Concomitant]
  2. MAXZIDE [Concomitant]
     Dosage: 1 DF, QD
     Route: 048
     Dates: start: 20041101
  3. ZOLOFT [Concomitant]
     Dosage: 100 MG, QD
     Route: 048
  4. AMITRIPTYLINE HCL [Concomitant]
     Dosage: 50 MG, QD
     Route: 048
  5. AZITHROMYCIN [Concomitant]
     Dosage: 2 TABLET AT ONCE PER DAY
     Route: 048
  6. NAPROXEN [Concomitant]
     Dosage: 1 DF, BID
     Route: 048
  7. CEPHALEXIN [Concomitant]
     Dosage: 500 MG, TID
     Route: 048
  8. ZOFRAN [Concomitant]
     Dosage: 4 MG, Q8H
     Route: 048
  9. PROTONIX [Concomitant]
     Dosage: 40 MG, QD
     Route: 048
  10. LIPITOR [Concomitant]
     Dosage: 10 MG, QHS
     Route: 048
  11. FLEXERIL [Concomitant]
     Dosage: 2 DF, QHS
     Route: 048
  12. COLACE [Concomitant]
  13. ALBUTEROL [Concomitant]
     Dosage: 2 PUFFS TWO TIMES A DAY
  14. AREDIA [Suspect]
     Dosage: 90 MG, UNK
     Dates: start: 20050701, end: 20050901
  15. AREDIA [Suspect]
     Dosage: 90 MG, UNK
     Dates: start: 20051001, end: 20060201
  16. TRIAMTERENE AND HYDROCHLOROTHIAZID ^HARRIS^ [Concomitant]
  17. IRON [Concomitant]
  18. VITAMIN E [Concomitant]
  19. ULTRAM [Concomitant]
     Dosage: 50 MG, Q4H
     Route: 048
  20. VICODIN ES [Concomitant]
  21. COUMADIN [Concomitant]
  22. XANAX [Concomitant]
  23. TUSSIONEX [Concomitant]
     Dosage: 1 TSP, BID
     Route: 048
  24. PROCHLORPERAZINE TAB [Concomitant]
     Indication: NAUSEA
     Dosage: 10 MG, Q4H
     Route: 048
  25. AMOXICILLIN [Concomitant]
     Dosage: 500 MG, TID
     Route: 048
  26. AREDIA [Suspect]
     Indication: METASTASES TO BONE
     Dosage: 60 MG Q3MONTHS
     Dates: end: 20060209
  27. NSAID'S [Suspect]
  28. ALOXI [Concomitant]
  29. WARFARIN [Concomitant]
     Dosage: 1 MG, QD
     Route: 048
  30. MICARDIS [Concomitant]
     Dosage: 40 MG, QD
     Route: 048
  31. CENTRUM SILVER [Concomitant]
  32. COMPAZINE [Concomitant]
  33. ZOMETA [Suspect]
     Indication: METASTASES TO BONE
     Dosage: 4 MG, MONTHLY
     Dates: start: 20041130, end: 20050101
  34. ADRIAMYCIN PFS [Concomitant]
     Dosage: UNK
     Dates: start: 20040901, end: 20050201
  35. ATIVAN [Concomitant]
  36. OXYCONTIN [Concomitant]
     Indication: BACK PAIN
     Dosage: 10 MG, Q12H
     Route: 048
  37. DIOVAN [Concomitant]
     Dosage: 160 MG, QD
     Route: 048
  38. CITALOPRAM HYDROBROMIDE [Concomitant]
     Dosage: 10 MG, QHS
     Route: 048
     Dates: start: 20050201
  39. CITALOPRAM HYDROBROMIDE [Concomitant]
     Dosage: 20 MG, QD
     Route: 048
  40. ARIMIDEX [Concomitant]
     Dosage: 1 MG QD
     Route: 048
     Dates: start: 20050201
  41. CHANTIX [Concomitant]
  42. ROCEPHIN [Concomitant]
  43. CELEXA [Concomitant]
  44. NITROGLYCERIN [Concomitant]
     Indication: CHEST PAIN
  45. METRONIDAZOLE [Concomitant]
     Dosage: 500 MG, BID
     Route: 048
  46. FLUOROURACIL [Concomitant]
     Dosage: UNK
     Dates: start: 20040901, end: 20050201
  47. FLEXERIL [Concomitant]
     Dosage: 1 DF, TID
     Route: 048
  48. HYDROCODONE BITARTRATE [Concomitant]
     Dosage: 7.5 MG, BID
     Route: 048
  49. PRILOSEC [Concomitant]
     Dosage: 40 MG, QD
     Route: 048
  50. ZANTAC [Concomitant]
  51. AMBIEN [Concomitant]
  52. MEDROL [Concomitant]
  53. PREDNISONE [Concomitant]
  54. DIPHENHYDRAMINE [Concomitant]
     Dosage: 50 MG, UNK
     Route: 048
  55. ANUCORT-HC [Concomitant]
     Dosage: 1 DF, TID
     Route: 054
  56. LESCOL [Concomitant]
     Dosage: 20 MG, QHS
     Route: 048
  57. CYTOXAN [Concomitant]
     Dosage: UNK
     Dates: start: 20040901, end: 20050201
  58. DECADRON [Concomitant]
  59. DIOVAN [Concomitant]
     Dosage: 80 MG, UNK
     Route: 048
  60. CYCLOBENZAPRINE [Concomitant]
     Dosage: 5 MG, TID
     Route: 048
  61. CYCLOBENZAPRINE [Concomitant]
     Dosage: 10 MG AT NIGHT
     Route: 048
  62. VITAMIN A [Concomitant]
  63. PROCRIT                            /00909301/ [Concomitant]
  64. MEGACE [Concomitant]
  65. MELOXICAM [Concomitant]
     Dosage: 15 MG, QD
     Route: 048
  66. LUSONEX [Concomitant]
     Dosage: 1 DF, BID
     Route: 048
  67. SULFAMETHOXAZOLE AND TRIMETHOPRIM [Concomitant]
     Dosage: 1 DF, BID
     Route: 048
  68. LORCET-HD [Concomitant]
  69. HEPARIN [Concomitant]
  70. AZITHROMYCIN [Concomitant]
     Dosage: 1 DF, QD
     Route: 048
  71. ENULOSE [Concomitant]
     Dosage: 30 CC
     Route: 048
  72. PROMETHAZINE HCL AND CODEINE [Concomitant]
     Dosage: 1 TSP, Q6H
     Route: 048
  73. PROAIR HFA [Concomitant]

REACTIONS (91)
  - ANAEMIA [None]
  - FATIGUE [None]
  - BLOOD CREATININE INCREASED [None]
  - GLOMERULAR FILTRATION RATE DECREASED [None]
  - CHEST PAIN [None]
  - BRONCHITIS [None]
  - WEIGHT DECREASED [None]
  - PYREXIA [None]
  - HYPOAESTHESIA [None]
  - ANXIETY [None]
  - BACK PAIN [None]
  - INTERVERTEBRAL DISC PROTRUSION [None]
  - SPINAL OSTEOARTHRITIS [None]
  - CERVICAL SPINAL STENOSIS [None]
  - FOOT FRACTURE [None]
  - CHOLELITHIASIS [None]
  - BILIARY COLIC [None]
  - GASTROENTERITIS VIRAL [None]
  - ARTHRALGIA [None]
  - STOMATITIS [None]
  - OSTEONECROSIS [None]
  - PAIN IN JAW [None]
  - EXPOSED BONE IN JAW [None]
  - INJURY [None]
  - ORAL DISORDER [None]
  - GINGIVAL ATROPHY [None]
  - ORAL INFECTION [None]
  - NEOPLASM MALIGNANT [None]
  - FEBRILE NEUTROPENIA [None]
  - NAUSEA [None]
  - SPINAL X-RAY ABNORMAL [None]
  - GASTROOESOPHAGEAL REFLUX DISEASE [None]
  - TOTAL LUNG CAPACITY DECREASED [None]
  - OSTEOPENIA [None]
  - FALL [None]
  - BONE PAIN [None]
  - DISEASE PROGRESSION [None]
  - IMPAIRED HEALING [None]
  - COMPUTERISED TOMOGRAM ABNORMAL [None]
  - BONE SCAN ABNORMAL [None]
  - SYNCOPE [None]
  - SLEEP APNOEA SYNDROME [None]
  - KYPHOSIS [None]
  - MUSCLE SPASMS [None]
  - HAEMOPTYSIS [None]
  - LIMB INJURY [None]
  - DYSPNOEA EXERTIONAL [None]
  - DECREASED APPETITE [None]
  - PAIN [None]
  - ORAL MUCOSAL EXFOLIATION [None]
  - HEADACHE [None]
  - VERTEBRAL COLUMN MASS [None]
  - HYPERLIPIDAEMIA [None]
  - ABDOMINAL PAIN UPPER [None]
  - COUGH [None]
  - SLEEP DISORDER [None]
  - GINGIVAL ULCERATION [None]
  - TOOTH DISORDER [None]
  - NEPHROSCLEROSIS [None]
  - DEPRESSION [None]
  - LUNG DISORDER [None]
  - OSTEOPOROSIS [None]
  - SPUTUM DISCOLOURED [None]
  - VAGINAL INFECTION [None]
  - PROCTITIS [None]
  - HYPERREFLEXIA [None]
  - TANDEM GAIT TEST ABNORMAL [None]
  - NUCLEAR MAGNETIC RESONANCE IMAGING ABNORMAL [None]
  - GAIT DISTURBANCE [None]
  - SINUSITIS [None]
  - DIZZINESS [None]
  - OSTEOSCLEROSIS [None]
  - LUNG NEOPLASM [None]
  - HYPONATRAEMIA [None]
  - HAEMORRHOIDS [None]
  - INSOMNIA [None]
  - MUSCULAR WEAKNESS [None]
  - STRESS [None]
  - PROTEIN TOTAL INCREASED [None]
  - VAGINAL DISCHARGE [None]
  - TONGUE ULCERATION [None]
  - COMPRESSION FRACTURE [None]
  - LHERMITTE'S SIGN [None]
  - RENAL FAILURE CHRONIC [None]
  - VISION BLURRED [None]
  - OSTEOARTHRITIS [None]
  - LUNG HYPERINFLATION [None]
  - DISABILITY [None]
  - CONSTIPATION [None]
  - LIGAMENT INJURY [None]
  - ASTHENIA [None]
